FAERS Safety Report 18183700 (Version 1)
Quarter: 2020Q3

REPORT INFORMATION
  Report Type: Spontaneous
  Country: US (occurrence: US)
  Receive Date: 20200822
  Receipt Date: 20200822
  Transmission Date: 20201103
  Serious: No
  Sender: FDA-Public Use
  Company Number: US-ANIPHARMA-2020-US-007892

PATIENT
  Age: 61 Year
  Sex: Female
  Weight: 61.24 kg

DRUGS (4)
  1. ATENOLOL. [Concomitant]
     Active Substance: ATENOLOL
     Dosage: UNK
     Route: 065
     Dates: start: 199004
  2. LIPITOR [Concomitant]
     Active Substance: ATORVASTATIN CALCIUM
     Dosage: UNK
     Route: 065
     Dates: start: 201504
  3. ARIMIDEX [Suspect]
     Active Substance: ANASTROZOLE
     Indication: BREAST CANCER
     Dosage: 1MG A DAY
     Route: 048
     Dates: start: 201901, end: 201910
  4. METFORMIN [Concomitant]
     Active Substance: METFORMIN HYDROCHLORIDE
     Dosage: UNK
     Route: 065
     Dates: start: 2019

REACTIONS (9)
  - Insomnia [Recovering/Resolving]
  - Vulvovaginal dryness [Recovering/Resolving]
  - Vulvovaginal pain [Recovering/Resolving]
  - Alopecia [Recovering/Resolving]
  - Anxiety [Recovering/Resolving]
  - Hot flush [Recovering/Resolving]
  - Drug ineffective [Unknown]
  - Vaginal disorder [Recovering/Resolving]
  - Arthralgia [Recovering/Resolving]

NARRATIVE: CASE EVENT DATE: 201901
